FAERS Safety Report 12536758 (Version 2)
Quarter: 2016Q3

REPORT INFORMATION
  Report Type: Spontaneous
  Country: US (occurrence: US)
  Receive Date: 20160707
  Receipt Date: 20160825
  Transmission Date: 20161109
  Serious: No
  Sender: FDA-Public Use
  Company Number: US-009507513-1606USA007613

PATIENT
  Age: 71 Year
  Sex: Female

DRUGS (1)
  1. BELSOMRA [Suspect]
     Active Substance: SUVOREXANT
     Indication: INSOMNIA
     Dosage: 10 MG, FREQUENCY: UNK
     Route: 048

REACTIONS (6)
  - Incorrect dose administered [Unknown]
  - Nightmare [Unknown]
  - Balance disorder [Unknown]
  - Erythema [Unknown]
  - Skin abrasion [Unknown]
  - Head injury [Unknown]

NARRATIVE: CASE EVENT DATE: 20160819
